FAERS Safety Report 6641970-0 (Version None)
Quarter: 2010Q1

REPORT INFORMATION
  Report Type: 
  Country: None (occurrence: None)
  Receive Date: 20100319
  Receipt Date: 20100308
  Transmission Date: 20100710
  Serious: Yes (Hospitalization)
  Sender: FDA-Public Use
  Company Number: CA-ELI_LILLY_AND_COMPANY-CA201003003127

PATIENT
  Age: 30 Year
  Sex: Male

DRUGS (8)
  1. CYMBALTA [Suspect]
     Dosage: 60 MG, DAILY (1/D)
  2. MIRAPEX [Concomitant]
     Dosage: 0.25 MG, 3/D
  3. BACLOFEN [Concomitant]
  4. COPAXONE [Concomitant]
  5. LAMICTAL CD [Concomitant]
  6. NEURONTIN [Concomitant]
  7. PANTOLOC                           /01263201/ [Concomitant]
  8. ALCOHOL [Concomitant]

REACTIONS (7)
  - ALCOHOL ABUSE [None]
  - APATHY [None]
  - COMPULSIONS [None]
  - DEPRESSED MOOD [None]
  - MORBID THOUGHTS [None]
  - PERSONALITY CHANGE [None]
  - SOMNOLENCE [None]
